FAERS Safety Report 4518882-1 (Version None)
Quarter: 2004Q4

REPORT INFORMATION
  Report Type: 
  Country: None (occurrence: None)
  Receive Date: 20041206
  Receipt Date: 20041124
  Transmission Date: 20050328
  Serious: Yes (Hospitalization)
  Sender: FDA-Public Use
  Company Number: GB-BRISTOL-MYERS SQUIBB COMPANY-12774808

PATIENT
  Sex: Male
  Weight: 70 kg

DRUGS (1)
  1. ABILIFY [Suspect]
     Indication: SCHIZOPHRENIA
     Route: 048
     Dates: start: 20040601

REACTIONS (2)
  - LIVER FUNCTION TEST ABNORMAL [None]
  - SCHIZOPHRENIA [None]
